FAERS Safety Report 6271075-2 (Version None)
Quarter: 2009Q3

REPORT INFORMATION
  Report Type: 
  Country: None (occurrence: None)
  Receive Date: 20090716
  Receipt Date: 20090713
  Transmission Date: 20100115
  Serious: Yes (Hospitalization)
  Sender: FDA-Public Use
  Company Number: US-GILEAD-2009-0023091

PATIENT
  Sex: Male
  Weight: 75.9 kg

DRUGS (6)
  1. LETAIRIS [Suspect]
     Indication: PULMONARY ARTERIAL HYPERTENSION
     Route: 048
     Dates: start: 20080703
  2. COUMADIN [Concomitant]
  3. VIAGRA [Concomitant]
     Indication: PULMONARY ARTERIAL HYPERTENSION
  4. TOPROL-XL [Concomitant]
  5. NEXIUM [Concomitant]
  6. KLOR-CON [Concomitant]
     Indication: ELECTROLYTE SUBSTITUTION THERAPY

REACTIONS (1)
  - PNEUMONIA [None]
